FAERS Safety Report 8836672 (Version 1)
Quarter: 2012Q4

REPORT INFORMATION
  Report Type: Spontaneous
  Country: FR (occurrence: None)
  Receive Date: 20121010
  Receipt Date: 20121010
  Transmission Date: 20130627
  Serious: Yes (Other)
  Sender: FDA-Public Use
  Company Number: 2012ST000689

PATIENT
  Age: 80 Year
  Sex: Male

DRUGS (6)
  1. MATULANE [Suspect]
     Indication: NODULAR LYMPHOMA
     Route: 048
     Dates: start: 201208, end: 201208
  2. REPAGLINIDE [Concomitant]
  3. NICARDIPINE [Concomitant]
  4. HYDROCHLORIDE [Concomitant]
  5. IRBESARTAN [Concomitant]
  6. METFORMIN [Concomitant]

REACTIONS (7)
  - Chest discomfort [None]
  - Dyspnoea [None]
  - Asthenia [None]
  - Gait disturbance [None]
  - Decreased appetite [None]
  - Dysgeusia [None]
  - Weight decreased [None]
